FAERS Safety Report 7362210-3 (Version None)
Quarter: 2011Q1

REPORT INFORMATION
  Report Type: 
  Country: None (occurrence: None)
  Receive Date: 20110318
  Receipt Date: 20110304
  Transmission Date: 20110831
  Serious: Yes (Hospitalization, Other)
  Sender: FDA-Public Use
  Company Number: PHEH2006US11227

PATIENT
  Sex: Female
  Weight: 78 kg

DRUGS (32)
  1. ZOMETA [Suspect]
     Dosage: 4 MG,
     Route: 042
     Dates: start: 20030101, end: 20050926
  2. PERCOCET [Concomitant]
  3. KLONOPIN [Concomitant]
  4. AMOXIL ^AYERST LAB^ [Concomitant]
  5. IMODIUM [Concomitant]
  6. VERAPAMIL [Concomitant]
     Indication: HYPERTENSION
     Dosage: 240 MG, QD
  7. PRILOSEC [Concomitant]
  8. NORTRIPTYLINE [Concomitant]
  9. ADVIL LIQUI-GELS [Concomitant]
  10. ZYRTEC [Concomitant]
  11. NORFLEX [Concomitant]
     Dosage: UNK
     Dates: start: 20060117, end: 20100524
  12. DICLOFENAC [Concomitant]
  13. WELLBUTRIN [Concomitant]
  14. AMBIEN [Concomitant]
  15. VICODIN [Concomitant]
  16. CELEBREX [Concomitant]
  17. SANDOSTATIN [Concomitant]
  18. DOXYCYCLINE [Concomitant]
  19. VIOXX [Concomitant]
  20. PROVENTIL [Concomitant]
  21. KENALOG [Concomitant]
     Dosage: UNK
     Dates: start: 20060117, end: 20060207
  22. CEFTRIAXONE [Suspect]
  23. LEXAPRO [Concomitant]
  24. KEFLEX [Concomitant]
  25. VITAMIN B-12 [Concomitant]
  26. CALCIUM WITH VITAMIN D [Concomitant]
  27. BEXTRA [Concomitant]
  28. EFFEXOR [Concomitant]
     Dosage: 75 MG, TID
  29. ATIVAN [Concomitant]
  30. STEROIDS NOS [Concomitant]
  31. MOTRIN [Concomitant]
  32. SPIRIVA [Concomitant]

REACTIONS (88)
  - BACK PAIN [None]
  - GENERAL PHYSICAL HEALTH DETERIORATION [None]
  - DECREASED INTEREST [None]
  - LYMPHADENOPATHY [None]
  - DIARRHOEA [None]
  - CARPAL TUNNEL SYNDROME [None]
  - GAIT DISTURBANCE [None]
  - FLANK PAIN [None]
  - WEIGHT DECREASED [None]
  - DYSPHAGIA [None]
  - AGITATION [None]
  - FISTULA [None]
  - BETA HAEMOLYTIC STREPTOCOCCAL INFECTION [None]
  - INSOMNIA [None]
  - MULTIPLE MYELOMA [None]
  - ARTHRITIS [None]
  - BREAST TENDERNESS [None]
  - PARAESTHESIA [None]
  - RIB FRACTURE [None]
  - LUMBAR RADICULOPATHY [None]
  - HERPES ZOSTER [None]
  - MENISCUS LESION [None]
  - UPPER AIRWAY OBSTRUCTION [None]
  - ANAEMIA [None]
  - PYREXIA [None]
  - ABSCESS [None]
  - PAIN [None]
  - ERYTHEMA [None]
  - BONE DISORDER [None]
  - HYPOAESTHESIA [None]
  - ACTINOMYCOSIS [None]
  - LIBIDO DECREASED [None]
  - INTERVERTEBRAL DISC DEGENERATION [None]
  - LUMBAR SPINAL STENOSIS [None]
  - EPICONDYLITIS [None]
  - OSTEOPOROSIS [None]
  - NEPHROLITHIASIS [None]
  - TEMPOROMANDIBULAR JOINT SYNDROME [None]
  - ANXIETY [None]
  - HEADACHE [None]
  - EAR PAIN [None]
  - FACIAL PAIN [None]
  - OSTEOMYELITIS [None]
  - BARRETT'S OESOPHAGUS [None]
  - PHARYNGEAL OEDEMA [None]
  - HAEMATOCHEZIA [None]
  - SCOLIOSIS [None]
  - DYSPNOEA [None]
  - HYPOTENSION [None]
  - PERIODONTAL DESTRUCTION [None]
  - ORAL INFECTION [None]
  - RESTLESS LEGS SYNDROME [None]
  - GASTROINTESTINAL HAEMORRHAGE [None]
  - PULMONARY OEDEMA [None]
  - BONE PAIN [None]
  - WOUND DEHISCENCE [None]
  - ORAL DISORDER [None]
  - TENDERNESS [None]
  - CHRONIC OBSTRUCTIVE PULMONARY DISEASE [None]
  - TOOTH LOSS [None]
  - GINGIVAL ULCERATION [None]
  - RENAL CYST [None]
  - CERUMEN IMPACTION [None]
  - SOMNOLENCE [None]
  - DIVERTICULUM [None]
  - MUCOSAL ULCERATION [None]
  - IMPAIRED WORK ABILITY [None]
  - OSTEOSCLEROSIS [None]
  - SLEEP APNOEA SYNDROME [None]
  - NEUROPATHY PERIPHERAL [None]
  - FUNGAL INFECTION [None]
  - PAIN IN EXTREMITY [None]
  - FACET JOINT SYNDROME [None]
  - FURUNCLE [None]
  - OSTEOARTHRITIS [None]
  - INTESTINAL POLYP [None]
  - PULMONARY VASCULAR DISORDER [None]
  - RASH GENERALISED [None]
  - OSTEONECROSIS OF JAW [None]
  - ARTHRALGIA [None]
  - TREMOR [None]
  - VITAMIN B12 DEFICIENCY [None]
  - SPINAL OSTEOARTHRITIS [None]
  - MASTICATION DISORDER [None]
  - VULVOVAGINAL DRYNESS [None]
  - MUSCULAR WEAKNESS [None]
  - HAEMOPTYSIS [None]
  - CARDIAC ARREST [None]
